FAERS Safety Report 16413103 (Version 5)
Quarter: 2019Q3

REPORT INFORMATION
  Report Type: Report from Study
  Country: None (occurrence: US)
  Receive Date: 20190611
  Receipt Date: 20190812
  Transmission Date: 20191004
  Serious: Yes (Hospitalization, Other)
  Sender: FDA-Public Use
  Company Number: US-ABBVIE-19K-163-2809660-00

PATIENT
  Age: 83 Year
  Sex: Female
  Weight: 68.1 kg

DRUGS (1)
  1. HUMIRA [Suspect]
     Active Substance: ADALIMUMAB
     Indication: RHEUMATOID ARTHRITIS
     Route: 058
     Dates: start: 2015

REACTIONS (7)
  - Osteoarthritis [Recovered/Resolved]
  - Arthritis infective [Recovering/Resolving]
  - Knee operation [Recovered/Resolved]
  - Swelling [Not Recovered/Not Resolved]
  - Wound dehiscence [Recovering/Resolving]
  - Bone disorder [Recovered/Resolved]
  - Pain [Recovering/Resolving]

NARRATIVE: CASE EVENT DATE: 2019
